FAERS Safety Report 13945641 (Version 3)
Quarter: 2019Q2

REPORT INFORMATION
  Report Type: Spontaneous
  Country: US (occurrence: US)
  Receive Date: 20170907
  Receipt Date: 20190605
  Transmission Date: 20190711
  Serious: Yes (Death, Hospitalization, Other)
  Sender: FDA-Public Use
  Company Number: US-PFIZER INC-2017384581

PATIENT
  Age: 62 Year
  Sex: Male
  Weight: 81.65 kg

DRUGS (2)
  1. LYRICA [Suspect]
     Active Substance: PREGABALIN
     Indication: NEUROPATHY PERIPHERAL
     Dosage: 50 MG, 1X/DAY
     Route: 048
     Dates: start: 2017
  2. LYRICA [Suspect]
     Active Substance: PREGABALIN
     Dosage: 50 MG, 2X/DAY
     Route: 048
     Dates: end: 20170901

REACTIONS (32)
  - Aspiration [Fatal]
  - Pneumonia [Fatal]
  - Peripheral vascular disorder [Unknown]
  - Tremor [Not Recovered/Not Resolved]
  - Depression [Not Recovered/Not Resolved]
  - Restlessness [Not Recovered/Not Resolved]
  - Delirium [Unknown]
  - Atrial fibrillation [Fatal]
  - Wound infection [Recovering/Resolving]
  - Dysstasia [Not Recovered/Not Resolved]
  - Respiratory failure [Unknown]
  - Oxygen saturation decreased [Recovered/Resolved]
  - Anxiety [Not Recovered/Not Resolved]
  - Aggression [Not Recovered/Not Resolved]
  - Gangrene [Fatal]
  - Type 2 diabetes mellitus [Fatal]
  - Insomnia [Not Recovered/Not Resolved]
  - Anaemia [Fatal]
  - Suicidal ideation [Unknown]
  - Irritability [Not Recovered/Not Resolved]
  - Pollakiuria [Unknown]
  - Ischaemic cardiomyopathy [Fatal]
  - Peripheral arterial occlusive disease [Fatal]
  - Hypertension [Fatal]
  - Chronic obstructive pulmonary disease [Fatal]
  - Arteriosclerosis [Unknown]
  - Confusional state [Not Recovered/Not Resolved]
  - Muscle spasms [Not Recovered/Not Resolved]
  - Weight decreased [Unknown]
  - Gait inability [Not Recovered/Not Resolved]
  - Paranoia [Not Recovered/Not Resolved]
  - Lethargy [Not Recovered/Not Resolved]

NARRATIVE: CASE EVENT DATE: 2017
